FAERS Safety Report 4734462-7 (Version None)
Quarter: 2005Q3

REPORT INFORMATION
  Report Type: 
  Country: None (occurrence: None)
  Receive Date: 20050804
  Receipt Date: 20050131
  Transmission Date: 20060218
  Serious: Yes (Hospitalization)
  Sender: FDA-Public Use
  Company Number: 200510501FR

PATIENT
  Age: 64 Year
  Sex: Female
  Weight: 70 kg

DRUGS (6)
  1. LANTUS [Suspect]
     Indication: DIABETES MELLITUS
     Route: 058
     Dates: start: 20040601, end: 20050601
  2. HUMALOG [Concomitant]
     Indication: DIABETES MELLITUS
     Route: 058
  3. TAHOR [Concomitant]
     Indication: HYPERCHOLESTEROLAEMIA
     Route: 048
     Dates: start: 20040801
  4. FORLAX [Concomitant]
     Route: 048
  5. LOPRESSOR [Concomitant]
     Indication: ARRHYTHMIA
     Route: 048
     Dates: start: 19970101
  6. KARDEGIC [Concomitant]
     Route: 048
     Dates: start: 20050601

REACTIONS (11)
  - BLOOD ALKALINE PHOSPHATASE INCREASED [None]
  - CARPAL TUNNEL SYNDROME [None]
  - DIABETIC NEUROPATHY [None]
  - DRUG HYPERSENSITIVITY [None]
  - DUPUYTREN'S CONTRACTURE [None]
  - ECZEMA [None]
  - GAMMA-GLUTAMYLTRANSFERASE INCREASED [None]
  - HYPOTHYROIDISM [None]
  - PRURITUS [None]
  - SCRATCH [None]
  - SKIN LESION [None]
